FAERS Safety Report 12935434 (Version 1)
Quarter: 2016Q4

REPORT INFORMATION
  Report Type: Spontaneous
  Country: US (occurrence: US)
  Receive Date: 20161114
  Receipt Date: 20161114
  Transmission Date: 20170207
  Serious: No
  Sender: FDA-Public Use
  Company Number: US-JAZZ-2016-US-018565

PATIENT
  Age: 53 Year
  Sex: Female
  Weight: 112.47 kg

DRUGS (55)
  1. LUNESTA [Suspect]
     Active Substance: ESZOPICLONE
     Indication: PRODUCT USED FOR UNKNOWN INDICATION
  2. CARAFATE [Concomitant]
     Active Substance: SUCRALFATE
  3. LASIX [Concomitant]
     Active Substance: FUROSEMIDE
  4. LEVOTHYROXINE                      /00068002/ [Concomitant]
     Active Substance: LEVOTHYROXINE
  5. RANEXA [Concomitant]
     Active Substance: RANOLAZINE
  6. TYLENOL WITH CODEINE [Concomitant]
     Active Substance: ACETAMINOPHEN\CODEINE PHOSPHATE
  7. BUTALBITAL APAP CAFFEINE [Concomitant]
  8. CHANTIX [Concomitant]
     Active Substance: VARENICLINE TARTRATE
  9. DEPAKOTE [Concomitant]
     Active Substance: DIVALPROEX SODIUM
  10. DEXILANT DR [Concomitant]
  11. XYREM [Suspect]
     Active Substance: SODIUM OXYBATE
     Indication: NARCOLEPSY
     Dosage: 2.25 G, BID
     Route: 048
     Dates: start: 201010, end: 2011
  12. POTASSIUM CL ER [Concomitant]
     Active Substance: POTASSIUM CHLORIDE
  13. FLUARIX QUADRIVALENT [Concomitant]
  14. DARVON N [Concomitant]
  15. DIPHENOXYLATE A [Concomitant]
  16. NEURONTIN [Concomitant]
     Active Substance: GABAPENTIN
  17. PLAQUENIL                          /00072602/ [Concomitant]
     Active Substance: HYDROXYCHLOROQUINE DIPHOSPHATE
  18. PROAIR HFA [Concomitant]
     Active Substance: ALBUTEROL SULFATE
  19. RANITIDINE                         /00550802/ [Concomitant]
  20. SEROQUEL [Concomitant]
     Active Substance: QUETIAPINE FUMARATE
  21. TORSEMIDE. [Concomitant]
     Active Substance: TORSEMIDE
  22. ALPRAZOLAM. [Concomitant]
     Active Substance: ALPRAZOLAM
  23. CRESTOR [Concomitant]
     Active Substance: ROSUVASTATIN CALCIUM
  24. LEVETIRACETAM. [Concomitant]
     Active Substance: LEVETIRACETAM
  25. XYREM [Suspect]
     Active Substance: SODIUM OXYBATE
     Dosage: 4.5 G, BID
     Route: 048
     Dates: start: 201511
  26. TRAZODONE                          /00447702/ [Concomitant]
     Active Substance: TRAZODONE HYDROCHLORIDE
  27. MODAFINIL. [Concomitant]
     Active Substance: MODAFINIL
  28. BUPROPION HYDROCHLORIDE SR [Concomitant]
     Active Substance: BUPROPION HYDROCHLORIDE
  29. CELEBREX [Concomitant]
     Active Substance: CELECOXIB
  30. CLONIDINE HCL [Concomitant]
     Active Substance: CLONIDINE HYDROCHLORIDE
  31. ONDANSETRON HCL [Concomitant]
     Active Substance: ONDANSETRON HYDROCHLORIDE
  32. PANTOPRAZOLE SODIUM. [Concomitant]
     Active Substance: PANTOPRAZOLE SODIUM
  33. TIZANIDINE HCL [Concomitant]
     Active Substance: TIZANIDINE HYDROCHLORIDE
  34. XYREM [Suspect]
     Active Substance: SODIUM OXYBATE
     Dosage: 3 G, BID
     Route: 048
     Dates: start: 201207, end: 2013
  35. PNEUMOVAX 23 [Concomitant]
     Active Substance: PNEUMOCOCCAL VACCINE, POLYVALENT 23
  36. RISPERDAL [Concomitant]
     Active Substance: RISPERIDONE
  37. TYLENOL WITH CODEINE [Concomitant]
     Active Substance: ACETAMINOPHEN\CODEINE PHOSPHATE
  38. TRAZODONE                          /00447702/ [Concomitant]
     Active Substance: TRAZODONE HYDROCHLORIDE
  39. XYREM [Suspect]
     Active Substance: SODIUM OXYBATE
     Dosage: 1.5 G, BID
     Route: 048
     Dates: start: 201405, end: 201405
  40. QUETIAPINE FUMARATE. [Concomitant]
     Active Substance: QUETIAPINE FUMARATE
  41. SYMBICORT [Concomitant]
     Active Substance: BUDESONIDE\FORMOTEROL FUMARATE DIHYDRATE
  42. SPIRIVA [Concomitant]
     Active Substance: TIOTROPIUM BROMIDE MONOHYDRATE
  43. SUCRALFATE. [Concomitant]
     Active Substance: SUCRALFATE
  44. FUROSEMIDE                         /00032602/ [Concomitant]
     Active Substance: FUROSEMIDE
  45. NITROGLYCERIN. [Concomitant]
     Active Substance: NITROGLYCERIN
  46. PLAVIX [Concomitant]
     Active Substance: CLOPIDOGREL BISULFATE
  47. XYREM [Suspect]
     Active Substance: SODIUM OXYBATE
     Dosage: 2.25 G, BID
     Route: 048
     Dates: start: 201109, end: 201207
  48. XYREM [Suspect]
     Active Substance: SODIUM OXYBATE
     Dosage: DOSE ADJUSTMENTS
     Route: 048
     Dates: start: 201405, end: 201511
  49. HYDROCODONE BITARTRATE AND ACETAMINOPHEN [Concomitant]
     Active Substance: ACETAMINOPHEN\HYDROCODONE BITARTRATE
  50. ALBUTEROL SULFATE. [Concomitant]
     Active Substance: ALBUTEROL SULFATE
  51. CALCIUM 600 + D [Concomitant]
     Active Substance: CALCIUM\VITAMIN D
  52. PAROXETINE HCL [Concomitant]
     Active Substance: PAROXETINE HYDROCHLORIDE
  53. POTASSIUM                          /00031402/ [Concomitant]
     Active Substance: POTASSIUM
  54. TAB A VITE [Concomitant]
  55. TOPROL XL [Concomitant]
     Active Substance: METOPROLOL SUCCINATE

REACTIONS (9)
  - Unevaluable event [Recovered/Resolved]
  - Mobility decreased [Recovered/Resolved]
  - Hallucination [Unknown]
  - Insomnia [Not Recovered/Not Resolved]
  - Asthenia [Recovered/Resolved]
  - Thinking abnormal [Unknown]
  - Dysarthria [Recovered/Resolved]
  - Drug ineffective [Unknown]
  - Labelled drug-drug interaction medication error [Unknown]

NARRATIVE: CASE EVENT DATE: 201608
